FAERS Safety Report 17389198 (Version 4)
Quarter: 2020Q3

REPORT INFORMATION
  Report Type: Spontaneous
  Country: US (occurrence: US)
  Receive Date: 20200207
  Receipt Date: 20200911
  Transmission Date: 20201102
  Serious: Yes (Disabling, Other)
  Sender: FDA-Public Use
  Company Number: US-PFIZER INC-2020053484

PATIENT
  Age: 54 Year
  Sex: Male

DRUGS (11)
  1. KEPPRA [Concomitant]
     Active Substance: LEVETIRACETAM
     Dosage: 750 MG, DAILY
     Route: 048
  2. LOTRISONE [Concomitant]
     Active Substance: BETAMETHASONE DIPROPIONATE\CLOTRIMAZOLE
     Dosage: 0.05%?1%, 2X/DAY
     Dates: end: 20130620
  3. DILANTIN [Suspect]
     Active Substance: PHENYTOIN
     Dosage: 100 MG, FOUR CAPSULES ONE DAY ALTERNATING WITH THREE CAPSULES
     Route: 048
     Dates: end: 20130620
  4. DILANTIN [Suspect]
     Active Substance: PHENYTOIN
     Indication: SEIZURE
     Dosage: 100 MG, FOUR CAPSULES DAILY
     Route: 048
  5. NARCO [Concomitant]
     Dosage: (325 MG?5 MG), 1 TABLET, 2X/DAY
     Route: 048
     Dates: end: 20140902
  6. DILANTIN [Suspect]
     Active Substance: PHENYTOIN
     Dosage: 100 MG, AS DIRECTED THREE TIMES A DAY
     Route: 048
     Dates: end: 20130620
  7. APTIOM [Concomitant]
     Active Substance: ESLICARBAZEPINE ACETATE
     Dosage: 800 MG, 1 TABLET 1X/DAY
     Route: 048
  8. BACTRIM DS [Concomitant]
     Active Substance: SULFAMETHOXAZOLE\TRIMETHOPRIM
     Dosage: (800 MG?160 MG), 1 TABLET 2X/DAY
     Route: 048
     Dates: end: 20140902
  9. DILANTIN [Suspect]
     Active Substance: PHENYTOIN
     Indication: SEIZURE
     Dosage: 100 MG, AS DIRECTED FOUR TIMES A DAY
     Route: 048
     Dates: end: 20130620
  10. BACTROBAN [Concomitant]
     Active Substance: MUPIROCIN\MUPIROCIN CALCIUM
     Dosage: UNK UNK, 2X/DAY
     Dates: end: 20140902
  11. KEPPRA [Concomitant]
     Active Substance: LEVETIRACETAM
     Dosage: 500 MG, 2X/DAY (1 TABLET)
     Route: 048

REACTIONS (7)
  - Balance disorder [Unknown]
  - Amnesia [Unknown]
  - Mood swings [Unknown]
  - Cognitive disorder [Unknown]
  - Encephalomalacia [Unknown]
  - Cerebellar atrophy [Not Recovered/Not Resolved]
  - Cerebral infarction [Unknown]

NARRATIVE: CASE EVENT DATE: 20181112
